FAERS Safety Report 24045950 (Version 2)
Quarter: 2024Q3

REPORT INFORMATION
  Report Type: Spontaneous
  Country: US (occurrence: US)
  Receive Date: 20240703
  Receipt Date: 20240717
  Transmission Date: 20241017
  Serious: No
  Sender: ROCHE
  Company Number: US-ROCHE-RCA5209301

PATIENT
  Age: 79 Year
  Sex: Female

DRUGS (2)
  1. ACTEMRA ACTPEN [Suspect]
     Active Substance: TOCILIZUMAB
     Indication: Rheumatoid arthritis
     Dosage: ONGOING: YES
     Route: 058
     Dates: start: 20240520
  2. ACTEMRA ACTPEN [Suspect]
     Active Substance: TOCILIZUMAB
     Indication: Interstitial lung disease

REACTIONS (6)
  - Drug delivery system malfunction [Unknown]
  - Drug delivery system malfunction [Unknown]
  - Product complaint [Unknown]
  - No adverse event [Unknown]
  - Wrong technique in product usage process [Unknown]
  - Product dose omission issue [Unknown]

NARRATIVE: CASE EVENT DATE: 20240520
